FAERS Safety Report 20130936 (Version 1)
Quarter: 2021Q4

REPORT INFORMATION
  Report Type: Spontaneous
  Country: US (occurrence: US)
  Receive Date: 20211130
  Receipt Date: 20211130
  Transmission Date: 20220303
  Serious: No
  Sender: FDA-Public Use
  Company Number: US-NEUROCRINE BIOSCIENCES INC.-2021NBI06834

PATIENT

DRUGS (4)
  1. INGREZZA [Suspect]
     Active Substance: VALBENAZINE
     Indication: Tardive dyskinesia
     Dosage: 40 MILLIGRAM, QD, AT NIGHT
     Route: 048
  2. HALOPERIDOL DECANOATE [Concomitant]
     Active Substance: HALOPERIDOL DECANOATE
     Dosage: 5 UNK, BID
  3. VISCERAL [Concomitant]
     Dosage: 25 MILLIGRAM, BID
  4. ARTANE [Concomitant]
     Active Substance: TRIHEXYPHENIDYL HYDROCHLORIDE
     Dosage: 4 MILLIGRAM, BID

REACTIONS (5)
  - Disorientation [Unknown]
  - Tachyphrenia [Unknown]
  - Delirium [Unknown]
  - Insomnia [Unknown]
  - Restlessness [Unknown]
